FAERS Safety Report 7122245-2 (Version None)
Quarter: 2010Q4

REPORT INFORMATION
  Report Type: 
  Country: None (occurrence: None)
  Receive Date: 20101122
  Receipt Date: 20101122
  Transmission Date: 20110411
  Serious: Yes (Other)
  Sender: FDA-Public Use
  Company Number: None

PATIENT
  Sex: Female
  Weight: 53.5244 kg

DRUGS (1)
  1. TRIHEXYPHENIDYL 2MG WATSO [Suspect]
     Indication: DYSTONIA
     Dosage: 2MG TID PO
     Route: 048
     Dates: start: 20101108, end: 20101117

REACTIONS (3)
  - ATAXIA [None]
  - PSYCHOMOTOR HYPERACTIVITY [None]
  - TIC [None]
